FAERS Safety Report 5086984-X (Version None)
Quarter: 2006Q3

REPORT INFORMATION
  Report Type: 
  Country: None (occurrence: None)
  Receive Date: 20060818
  Receipt Date: 20060731
  Transmission Date: 20061208
  Serious: Yes (Hospitalization)
  Sender: FDA-Public Use
  Company Number: US200608000470

PATIENT
  Sex: Female
  Weight: 84.4 kg

DRUGS (1)
  1. ZYPREXA [Suspect]
     Indication: AGGRESSION
     Dosage: 5 MG
     Dates: start: 20030101, end: 20050101

REACTIONS (2)
  - DIABETES MELLITUS [None]
  - MYOCARDIAL INFARCTION [None]
